FAERS Safety Report 8518236-7 (Version None)
Quarter: 2012Q3

REPORT INFORMATION
  Report Type: 
  Country: None (occurrence: None)
  Receive Date: 20120718
  Receipt Date: 20111223
  Transmission Date: 20120928
  Serious: No
  Sender: FDA-Public Use
  Company Number: US-BRISTOL-MYERS SQUIBB COMPANY-16263162

PATIENT
  Age: 89 Year
  Sex: Female

DRUGS (9)
  1. VITAMIN B-12 [Concomitant]
  2. CALCIUM [Concomitant]
  3. POTASSIUM CHLORIDE [Concomitant]
  4. ASCORBIC ACID [Concomitant]
  5. LIPITOR [Concomitant]
  6. FUROSEMIDE [Concomitant]
  7. COUMADIN [Suspect]
     Dosage: INCREASED TO 5MG DAILY
  8. ASPIRIN [Concomitant]
  9. FOLIC ACID [Concomitant]

REACTIONS (1)
  - DRUG LEVEL DECREASED [None]
